FAERS Safety Report 14161955 (Version 1)
Quarter: 2017Q4

REPORT INFORMATION
  Report Type: Spontaneous
  Country: US (occurrence: US)
  Receive Date: 20171106
  Receipt Date: 20171106
  Transmission Date: 20180321
  Serious: Yes (Life-Threatening, Other)
  Sender: FDA-Public Use
  Company Number: US-ASPEN PHARMA TRADING LIMITED US-AG-2017-007030

PATIENT
  Age: 54 Year
  Sex: Female

DRUGS (11)
  1. CYCLOPHOSPHAMIDE. [Suspect]
     Active Substance: CYCLOPHOSPHAMIDE
     Indication: BONE MARROW CONDITIONING REGIMEN
     Dosage: FLUDARABINE, BUSULFAN AND CYCLOPHOSPHAMIDE CONDITIONING REGIMEN
     Route: 065
  2. LENALIDOMIDE [Suspect]
     Active Substance: LENALIDOMIDE
     Dosage: 3 CYCLES OF CARFILZOMIB, LENALIDOMIDE AND DEXAMETHASONE
     Route: 065
  3. FLUDARABINE [Suspect]
     Active Substance: FLUDARABINE PHOSPHATE
     Indication: BONE MARROW CONDITIONING REGIMEN
     Dosage: FLUDARABINE, BUSULFAN, AND CYCLOPHOSPHAMIDE CONDITIONING REGIMEN
     Route: 065
  4. DEXAMETHASONE. [Suspect]
     Active Substance: DEXAMETHASONE
     Dosage: 1 CYCLE OF LENALIDOMIDE AND DEXAMETHASONE
     Route: 065
  5. CARFILZOMIB [Suspect]
     Active Substance: CARFILZOMIB
     Indication: PLASMA CELL MYELOMA
     Dosage: 3 CYCLES OF CARFILZOMIB, LENALIDOMIDE AND DEXAMETHASONE
     Route: 065
  6. LENALIDOMIDE [Suspect]
     Active Substance: LENALIDOMIDE
     Dosage: 1 CYCLE OF LENALIDOMIDE AND DEXAMETHASONE
     Route: 065
  7. LENALIDOMIDE [Suspect]
     Active Substance: LENALIDOMIDE
     Indication: PLASMA CELL MYELOMA
     Dosage: 4 CYCLES OF LENALIDOMIDE, BORTEZOMIB, AND DEXAMETHASONE
     Route: 065
  8. BUSULFAN. [Suspect]
     Active Substance: BUSULFAN
     Indication: BONE MARROW CONDITIONING REGIMEN
     Dosage: FLUDARABINE, BUSULFAN AND CYCLOPHOSPHAMIDE CONDITIONING REGIMEN
     Route: 065
  9. DEXAMETHASONE. [Suspect]
     Active Substance: DEXAMETHASONE
     Dosage: 4 CYCLES OF LENALIDOMIDE, BORTEZOMIB, AND DEXAMETHASONE
     Route: 065
  10. DEXAMETHASONE. [Suspect]
     Active Substance: DEXAMETHASONE
     Indication: PLASMA CELL MYELOMA
     Dosage: 3 CYCLES OF CARFILZOMIB, LENALIDOMIDE AND DEXAMETHASONE
     Route: 065
  11. BORTEZOMIB [Suspect]
     Active Substance: BORTEZOMIB
     Indication: PLASMA CELL MYELOMA
     Dosage: 4 CYCLES OF LENALIDOMIDE, BORTEZOMIB, AND DEXAMETHASONE
     Route: 065

REACTIONS (1)
  - Drug ineffective [Unknown]
